FAERS Safety Report 8507833-0 (Version None)
Quarter: 2012Q3

REPORT INFORMATION
  Report Type: 
  Country: None (occurrence: None)
  Receive Date: 20120713
  Receipt Date: 20120705
  Transmission Date: 20120928
  Serious: Yes (Death, Hospitalization, Other)
  Sender: FDA-Public Use
  Company Number: PHHY2011DE101072

PATIENT
  Sex: Female
  Weight: 43.5 kg

DRUGS (1)
  1. SANDOSTATIN LAR [Suspect]
     Indication: NEUROENDOCRINE TUMOUR
     Dosage: 20 MG, QMO
     Route: 030
     Dates: start: 20090430

REACTIONS (4)
  - METASTASES TO LUNG [None]
  - NEOPLASM MALIGNANT [None]
  - CARDIOPULMONARY FAILURE [None]
  - WEIGHT DECREASED [None]
